FAERS Safety Report 8297965 (Version 5)
Quarter: 2012Q4

REPORT INFORMATION
  Report Type: 
  Country: US (occurrence: US)
  Receive Date: 20111129
  Receipt Date: 20121017
  Transmission Date: 20130627
  Serious: Yes (Other)
  Sender: FDA-Public Use
  Company Number: PHHY2011US06790

PATIENT
  Age: 22 Year
  Sex: Male
  Weight: 65.76 kg

DRUGS (5)
  1. AFINITOR [Suspect]
     Indication: TUBEROUS SCLEROSIS
     Dosage: 10 mg, daily
     Route: 048
     Dates: start: 20110101
  2. AFINITOR [Suspect]
     Indication: BRAIN NEOPLASM BENIGN
     Dosage: 5 mg, UNK
     Route: 048
  3. AFINITOR [Suspect]
     Dosage: 2.5 mg, daily
     Route: 048
     Dates: start: 20120827
  4. AFINITOR [Suspect]
     Dosage: 10 mg, daily
     Route: 048
  5. LAMICTAL [Concomitant]
     Indication: CONVULSION
     Dosage: 200 mg, BID
     Route: 048
     Dates: start: 200703

REACTIONS (12)
  - Angiomyolipoma [Not Recovered/Not Resolved]
  - Concomitant disease progression [Not Recovered/Not Resolved]
  - Rhinorrhoea [Recovered/Resolved]
  - Feeling hot [Recovered/Resolved]
  - Nasal congestion [Recovered/Resolved]
  - Pyrexia [Recovered/Resolved]
  - Platelet count decreased [Recovering/Resolving]
  - Cough [Unknown]
  - Bronchitis [Unknown]
  - Diarrhoea [Recovered/Resolved]
  - Aspartate aminotransferase increased [Unknown]
  - Alanine aminotransferase increased [Unknown]
